FAERS Safety Report 4984153-2 (Version None)
Quarter: 2006Q2

REPORT INFORMATION
  Report Type: 
  Country: None (occurrence: None)
  Receive Date: 20060425
  Receipt Date: 20060425
  Transmission Date: 20061013
  Serious: Yes (Hospitalization)
  Sender: FDA-Public Use
  Company Number: None

PATIENT
  Age: 64 Year
  Sex: Male
  Weight: 75.7507 kg

DRUGS (1)
  1. ACETAMINOPHEN AND HYDROCODONE BITARTRATE [Suspect]
     Dosage: 1-2 TAB Q6HR PRN PATCH

REACTIONS (11)
  - BLOOD BILIRUBIN INCREASED [None]
  - BLOOD PRESSURE DECREASED [None]
  - CARDIO-RESPIRATORY ARREST [None]
  - DEPRESSED LEVEL OF CONSCIOUSNESS [None]
  - DRUG LEVEL ABOVE THERAPEUTIC [None]
  - DYSPNOEA [None]
  - HEPATIC ENZYME INCREASED [None]
  - INTERNATIONAL NORMALISED RATIO INCREASED [None]
  - PRODUCTIVE COUGH [None]
  - RENAL FAILURE ACUTE [None]
  - RESPIRATORY FAILURE [None]
